FAERS Safety Report 12276376 (Version 4)
Quarter: 2016Q3

REPORT INFORMATION
  Report Type: Report from Study
  Country: BR (occurrence: BR)
  Receive Date: 20160418
  Receipt Date: 20160718
  Transmission Date: 20161109
  Serious: Yes (Other)
  Sender: FDA-Public Use
  Company Number: BR-JNJFOC-20160416365

PATIENT
  Sex: Male

DRUGS (7)
  1. FLORATIL [Concomitant]
     Route: 065
  2. HYDROCORTISONE. [Concomitant]
     Active Substance: HYDROCORTISONE
     Route: 065
  3. SIMPONI [Suspect]
     Active Substance: GOLIMUMAB
     Indication: RHEUMATOID ARTHRITIS
     Route: 058
     Dates: start: 20150529
  4. NICOTINAMIDE [Concomitant]
     Active Substance: NIACINAMIDE
     Route: 065
  5. GLUTATHIONE [Concomitant]
     Active Substance: GLUTATHIONE
     Route: 065
  6. VITAMIN K [Concomitant]
     Active Substance: PHYTONADIONE
     Route: 065
  7. MAGNESIUM [Concomitant]
     Active Substance: MAGNESIUM
     Route: 065

REACTIONS (5)
  - Chikungunya virus infection [Recovered/Resolved]
  - Dysbacteriosis [Unknown]
  - Decreased immune responsiveness [Unknown]
  - Stomatitis [Unknown]
  - Arthralgia [Recovering/Resolving]
